FAERS Safety Report 16060650 (Version 2)
Quarter: 2019Q1

REPORT INFORMATION
  Report Type: Spontaneous
  Country: US (occurrence: US)
  Receive Date: 20190312
  Receipt Date: 20190323
  Transmission Date: 20190418
  Serious: Yes (Hospitalization, Other)
  Sender: FDA-Public Use
  Company Number: US-UNITED THERAPEUTICS-UNT-2019-004022

PATIENT
  Age: 60 Year
  Sex: Male

DRUGS (2)
  1. REMODULIN [Suspect]
     Active Substance: TREPROSTINIL
     Indication: PULMONARY ARTERIAL HYPERTENSION
     Dosage: 0.018 ?G/KG, CONTINUING
     Route: 041
     Dates: start: 20181010
  2. REMODULIN [Suspect]
     Active Substance: TREPROSTINIL
     Indication: PULMONARY HYPERTENSION
     Dosage: 0.022 UNK, UNK
     Route: 041
     Dates: start: 201810

REACTIONS (5)
  - Loss of consciousness [Unknown]
  - Device use issue [Unknown]
  - Cerebrovascular accident [Unknown]
  - Device issue [Unknown]
  - Seizure [Unknown]

NARRATIVE: CASE EVENT DATE: 20190303
